FAERS Safety Report 20578355 (Version 4)
Quarter: 2023Q1

REPORT INFORMATION
  Report Type: Report from Study
  Country: CA (occurrence: CA)
  Receive Date: 20220310
  Receipt Date: 20230222
  Transmission Date: 20230417
  Serious: Yes (Hospitalization, Other)
  Sender: FDA-Public Use
  Company Number: CA-TAKEDA-CA202020574

PATIENT
  Age: 70 Year
  Sex: Female

DRUGS (13)
  1. HUMAN IMMUNOGLOBULIN G [Suspect]
     Active Substance: HUMAN IMMUNOGLOBULIN G
     Indication: Secondary immunodeficiency
     Dosage: 8 GRAM, 1/WEEK
     Route: 058
     Dates: start: 20180704
  2. HUMAN IMMUNOGLOBULIN G [Suspect]
     Active Substance: HUMAN IMMUNOGLOBULIN G
     Dosage: 16 GRAM, 1/WEEK
     Route: 050
     Dates: start: 20180704
  3. HUMAN IMMUNOGLOBULIN G [Suspect]
     Active Substance: HUMAN IMMUNOGLOBULIN G
     Dosage: 8 GRAM, 1/WEEK
     Route: 050
     Dates: start: 20180704
  4. VAGIFEM [Concomitant]
     Active Substance: ESTRADIOL
  5. BETADERM [Concomitant]
     Active Substance: BETAMETHASONE VALERATE
  6. ALLOPURINOL [Concomitant]
     Active Substance: ALLOPURINOL
  7. VALSARTAN [Concomitant]
     Active Substance: VALSARTAN
  8. METOPROLOL [Concomitant]
     Active Substance: METOPROLOL
  9. MELOXICAM [Concomitant]
     Active Substance: MELOXICAM
  10. RABEPRAZOLE [Concomitant]
     Active Substance: RABEPRAZOLE
  11. RISEDRONATE SODIUM [Concomitant]
     Active Substance: RISEDRONATE SODIUM
     Dosage: UNK, Q4WEEKS
     Route: 065
  12. SANDOSTATIN [Concomitant]
     Active Substance: OCTREOTIDE ACETATE
     Dosage: UNK
     Route: 065
  13. HIZENTRA [Concomitant]
     Active Substance: HUMAN IMMUNOGLOBULIN G
     Dosage: UNK
     Route: 065
     Dates: start: 20140303

REACTIONS (4)
  - Pelvic fracture [Unknown]
  - Fall [Unknown]
  - Malignant neoplasm progression [Unknown]
  - Drug level increased [Unknown]
